FAERS Safety Report 7745294-X (Version None)
Quarter: 2011Q3

REPORT INFORMATION
  Report Type: 
  Country: None (occurrence: None)
  Receive Date: 20110819
  Receipt Date: 20110513
  Transmission Date: 20111222
  Serious: Yes (Other)
  Sender: FDA-Public Use
  Company Number: 033070

PATIENT
  Age: 17 Year
  Sex: Male

DRUGS (5)
  1. LAMOTRIGINE [Concomitant]
  2. PREGABALIN [Concomitant]
  3. LEVETIRACETAM [Concomitant]
  4. CLONAZEPAM [Concomitant]
  5. LACOSAMIDE [Suspect]
     Indication: EPILEPSY
     Dosage: 400 MG, 6 MG/KG DAILY

REACTIONS (3)
  - DEPRESSION [None]
  - ATAXIA [None]
  - SUICIDAL IDEATION [None]
